FAERS Safety Report 23096218 (Version 3)
Quarter: 2023Q4

REPORT INFORMATION
  Report Type: Report from Study
  Country: GB (occurrence: GB)
  Receive Date: 20231023
  Receipt Date: 20231116
  Transmission Date: 20240109
  Serious: Yes (Other)
  Sender: FDA-Public Use
  Company Number: GB-PFIZER INC-PV202300159264

PATIENT

DRUGS (1)
  1. GENOTROPIN [Suspect]
     Active Substance: SOMATROPIN
     Route: 058

REACTIONS (5)
  - Device loosening [Unknown]
  - Device leakage [Unknown]
  - Device breakage [Unknown]
  - Device power source issue [Unknown]
  - Device occlusion [Unknown]
